FAERS Safety Report 25449079 (Version 1)
Quarter: 2025Q2

REPORT INFORMATION
  Report Type: Spontaneous
  Country: US (occurrence: US)
  Receive Date: 20250618
  Receipt Date: 20250618
  Transmission Date: 20250716
  Serious: Yes (Death)
  Sender: R-PHARM US LLC
  Company Number: US-R-PHARM US LLC-2025RPM00006

PATIENT
  Age: 77 Year
  Sex: Female

DRUGS (3)
  1. IXEMPRA [Suspect]
     Active Substance: IXABEPILONE
     Indication: Fallopian tube cancer
     Dates: start: 20250410
  2. IXEMPRA [Suspect]
     Active Substance: IXABEPILONE
     Dates: start: 20250417
  3. IXEMPRA [Suspect]
     Active Substance: IXABEPILONE
     Dates: start: 20250424

REACTIONS (2)
  - Death [Fatal]
  - Off label use [Recovered/Resolved]

NARRATIVE: CASE EVENT DATE: 20250410
